FAERS Safety Report 19306427 (Version 1)
Quarter: 2021Q2

REPORT INFORMATION
  Report Type: Other
  Country: AU (occurrence: AU)
  Receive Date: 20210526
  Receipt Date: 20210526
  Transmission Date: 20210717
  Serious: Yes (Life-Threatening, Hospitalization)
  Sender: FDA-Public Use
  Company Number: AU-DEXPHARM-20210476

PATIENT
  Age: 35 Year
  Sex: Male
  Weight: 142 kg

DRUGS (6)
  1. CAFFEINE. [Interacting]
     Active Substance: CAFFEINE
     Indication: WEIGHT DECREASED
  2. CLOZAPINE. [Suspect]
     Active Substance: CLOZAPINE
     Indication: SCHIZOPHRENIA
     Dosage: NOCTE
  3. ALCOHOL. [Suspect]
     Active Substance: ALCOHOL
  4. ESOMEPRAZOLE. [Interacting]
     Active Substance: ESOMEPRAZOLE MAGNESIUM
     Dosage: MANE
  5. ATORVASTATIN [Interacting]
     Active Substance: ATORVASTATIN
     Dosage: NOCTE
  6. METFORMIN [Concomitant]
     Active Substance: METFORMIN HYDROCHLORIDE
     Dosage: NOCTE

REACTIONS (1)
  - Drug interaction [Recovered/Resolved]
